FAERS Safety Report 6289084-6 (Version None)
Quarter: 2009Q3

REPORT INFORMATION
  Report Type: 
  Country: None (occurrence: None)
  Receive Date: 20090729
  Receipt Date: 20090724
  Transmission Date: 20100115
  Serious: Yes (Life-Threatening, Hospitalization)
  Sender: FDA-Public Use
  Company Number: AR-ASTRAZENECA-2009UW21141

PATIENT
  Age: 50 Year
  Sex: Male

DRUGS (2)
  1. SEROQUEL XR [Suspect]
     Indication: SCHIZOAFFECTIVE DISORDER
     Route: 048
     Dates: start: 20070101, end: 20090221
  2. CLONAZEPAM [Concomitant]

REACTIONS (7)
  - BLOOD PRESSURE ABNORMAL [None]
  - ELECTROCARDIOGRAM CHANGE [None]
  - HEART RATE ABNORMAL [None]
  - INTENTIONAL OVERDOSE [None]
  - RENAL IMPAIRMENT [None]
  - SENSORY DISTURBANCE [None]
  - TRANSAMINASES INCREASED [None]
